FAERS Safety Report 10020314 (Version 3)
Quarter: 2014Q3

REPORT INFORMATION
  Report Type: Spontaneous
  Country: US (occurrence: US)
  Receive Date: 20140319
  Receipt Date: 20140902
  Transmission Date: 20150326
  Serious: Yes (Life-Threatening, Hospitalization, Other)
  Sender: FDA-Public Use
  Company Number: 2014SP001438

PATIENT
  Age: 50 Year
  Sex: Female

DRUGS (36)
  1. TIOTROPIUM BROMIDE [Suspect]
     Active Substance: TIOTROPIUM BROMIDE
     Indication: PRODUCT USED FOR UNKNOWN INDICATION
     Route: 055
  2. CHANTIX [Suspect]
     Active Substance: VARENICLINE TARTRATE
     Indication: EX-TOBACCO USER
  3. LEXAPRO [Concomitant]
     Active Substance: ESCITALOPRAM OXALATE
  4. LOPERAMIDE [Concomitant]
     Active Substance: LOPERAMIDE
  5. SPIRONOLACTONE. [Concomitant]
     Active Substance: SPIRONOLACTONE
  6. NACRO [Concomitant]
  7. FLOLAN [Suspect]
     Active Substance: EPOPROSTENOL SODIUM
     Indication: PULMONARY ARTERIAL HYPERTENSION
  8. FENTANYL. [Concomitant]
     Active Substance: FENTANYL
  9. FLOLAN [Suspect]
     Active Substance: EPOPROSTENOL SODIUM
     Indication: PULMONARY ARTERIAL HYPERTENSION
     Route: 042
     Dates: start: 20060728
  10. FLUTICASONE PROPIONATE. [Suspect]
     Active Substance: FLUTICASONE PROPIONATE
     Route: 055
  11. FLONASE [Suspect]
     Active Substance: FLUTICASONE PROPIONATE
     Indication: PRODUCT USED FOR UNKNOWN INDICATION
     Route: 055
  12. WELLBUTRIN [Suspect]
     Active Substance: BUPROPION HYDROCHLORIDE
     Indication: EX-TOBACCO USER
  13. REQUIP [Concomitant]
     Active Substance: ROPINIROLE HYDROCHLORIDE
  14. ZYPREXA [Concomitant]
     Active Substance: OLANZAPINE
  15. HYDROCORTISONE. [Concomitant]
     Active Substance: HYDROCORTISONE
  16. ROPINIROLE. [Concomitant]
     Active Substance: ROPINIROLE
  17. FLOLAN [Suspect]
     Active Substance: EPOPROSTENOL SODIUM
     Indication: PULMONARY ARTERIAL HYPERTENSION
  18. FLOLAN [Suspect]
     Active Substance: EPOPROSTENOL SODIUM
     Indication: PULMONARY ARTERIAL HYPERTENSION
  19. NEFAZODONE [Concomitant]
     Active Substance: NEFAZODONE
  20. FERROUS SULFATE [Concomitant]
     Active Substance: FERROUS SULFATE\FERROUS SULFATE, DRIED
  21. TEMAZEPAM. [Concomitant]
     Active Substance: TEMAZEPAM
  22. ZYPREXA [Concomitant]
     Active Substance: OLANZAPINE
  23. ALBUTEROL /00139501/ [Concomitant]
     Active Substance: ALBUTEROL
  24. FLOLAN [Suspect]
     Active Substance: EPOPROSTENOL SODIUM
     Indication: PULMONARY ARTERIAL HYPERTENSION
  25. POTASSIUM CHLORIDE. [Concomitant]
     Active Substance: POTASSIUM CHLORIDE
  26. BENZONATATE. [Concomitant]
     Active Substance: BENZONATATE
  27. OXAZEPAM. [Concomitant]
     Active Substance: OXAZEPAM
  28. OXYGEN. [Concomitant]
     Active Substance: OXYGEN
  29. REVATIO [Suspect]
     Active Substance: SILDENAFIL CITRATE
     Indication: PRODUCT USED FOR UNKNOWN INDICATION
  30. SALBUTAMOL [Concomitant]
     Active Substance: ALBUTEROL
  31. CEFTRIAXONE. [Suspect]
     Active Substance: CEFTRIAXONE
     Indication: INFECTION
     Route: 042
  32. FLOLAN [Suspect]
     Active Substance: EPOPROSTENOL SODIUM
     Indication: PULMONARY ARTERIAL HYPERTENSION
  33. VANCOMYCIN [Suspect]
     Active Substance: VANCOMYCIN
     Indication: INFECTION
     Route: 042
  34. SALMETEROL XINAFOATE [Suspect]
     Active Substance: SALMETEROL XINAFOATE
     Indication: PRODUCT USED FOR UNKNOWN INDICATION
     Route: 055
  35. FUROSEMIDE. [Concomitant]
     Active Substance: FUROSEMIDE
  36. FLUCONAZOLE. [Concomitant]
     Active Substance: FLUCONAZOLE

REACTIONS (35)
  - Adrenal insufficiency [Not Recovered/Not Resolved]
  - Paraproteinaemia [Unknown]
  - Intervertebral disc protrusion [Unknown]
  - Orthopnoea [Unknown]
  - Dyspnoea [Not Recovered/Not Resolved]
  - Palmar erythema [Unknown]
  - Exercise test abnormal [Unknown]
  - Plasma cell myeloma [Unknown]
  - Neoplasm malignant [Unknown]
  - Overweight [Not Recovered/Not Resolved]
  - Weight decreased [Unknown]
  - Dermatitis contact [Not Recovered/Not Resolved]
  - Chronic obstructive pulmonary disease [Not Recovered/Not Resolved]
  - Cough [Unknown]
  - Migraine [Unknown]
  - Condition aggravated [Unknown]
  - Tachyarrhythmia [Unknown]
  - Infection [Unknown]
  - Back pain [Not Recovered/Not Resolved]
  - Pulmonary haemorrhage [Unknown]
  - Deep vein thrombosis [Unknown]
  - Fibula fracture [Unknown]
  - Haemoglobin decreased [Recovered/Resolved]
  - Fatigue [Unknown]
  - Haemoptysis [Recovered/Resolved]
  - Haematoma [Unknown]
  - Depression [Not Recovered/Not Resolved]
  - Antiphospholipid antibodies [Unknown]
  - Supraventricular tachycardia [Recovered/Resolved]
  - Hypotension [Recovered/Resolved]
  - Cholecystectomy [Unknown]
  - Emphysema [Unknown]
  - Hypoxia [Not Recovered/Not Resolved]
  - Nausea [Not Recovered/Not Resolved]
  - Malaise [Unknown]

NARRATIVE: CASE EVENT DATE: 201111
